FAERS Safety Report 4443130-0 (Version None)
Quarter: 2004Q3

REPORT INFORMATION
  Report Type: 
  Country: None (occurrence: None)
  Receive Date: 20040903
  Receipt Date: 20040625
  Transmission Date: 20050211
  Serious: Yes (Other)
  Sender: FDA-Public Use
  Company Number: 2004UW13215

PATIENT
  Age: 74 Year
  Sex: Female
  Weight: 58.0604 kg

DRUGS (6)
  1. CRESTOR [Suspect]
     Indication: HYPERCHOLESTEROLAEMIA
     Dosage: 10 MG DAILY PO
     Route: 048
     Dates: start: 20040430
  2. LISINOPRIL [Concomitant]
  3. CARBIDOPA-LEVO CR-50 [Concomitant]
  4. MULTIVITAMIN [Concomitant]
  5. CENTRUM [Concomitant]
  6. CALCIUM [Concomitant]

REACTIONS (2)
  - PAIN [None]
  - RESTLESS LEGS SYNDROME [None]
